FAERS Safety Report 12800169 (Version 3)
Quarter: 2016Q4

REPORT INFORMATION
  Report Type: Spontaneous
  Country: RO (occurrence: RO)
  Receive Date: 20160930
  Receipt Date: 20161017
  Transmission Date: 20170207
  Serious: Yes (Other)
  Sender: FDA-Public Use
  Company Number: RO-PFIZER INC-2016443902

PATIENT
  Age: 59 Year
  Sex: Male

DRUGS (2)
  1. TEMSIROLIMUS [Suspect]
     Active Substance: TEMSIROLIMUS
     Indication: NEOPLASM MALIGNANT
     Dosage: 25 MG, WEEKLY
     Route: 042
     Dates: start: 20101109
  2. ZOLEDRONIC ACID [Suspect]
     Active Substance: ZOLEDRONIC ACID
     Indication: NEOPLASM MALIGNANT
     Dosage: UNK
     Dates: start: 201101

REACTIONS (6)
  - Neoplasm progression [Unknown]
  - Thrombosis [Recovered/Resolved]
  - Osteonecrosis of jaw [Recovered/Resolved]
  - Anaemia [Recovered/Resolved]
  - Hypokalaemia [Recovered/Resolved]
  - Hypoproteinaemia [Recovered/Resolved]

NARRATIVE: CASE EVENT DATE: 201101
